FAERS Safety Report 13401602 (Version 2)
Quarter: 2017Q2

REPORT INFORMATION
  Report Type: Spontaneous
  Country: IT (occurrence: IT)
  Receive Date: 20170404
  Receipt Date: 20170407
  Transmission Date: 20170830
  Serious: No
  Sender: FDA-Public Use
  Company Number: IT-PFIZER INC-2017141244

PATIENT
  Age: 77 Year
  Sex: Female

DRUGS (3)
  1. PRILACE (ENALAPRIL) [Suspect]
     Active Substance: ENALAPRIL
     Indication: MEDICATION ERROR
     Dosage: 5 MG, SINGLE (TOTAL FOR 1 DAY)
     Route: 048
  2. AMLODIPINE BESILATE [Suspect]
     Active Substance: AMLODIPINE BESYLATE
     Dosage: 5 MG, SINGLE
     Route: 048
  3. ALLOPURINOL. [Suspect]
     Active Substance: ALLOPURINOL
     Indication: MEDICATION ERROR
     Dosage: 100 MG, SINGLE (TOTAL FOR 1 DAY)
     Route: 048

REACTIONS (4)
  - Medication error [Unknown]
  - Asthenia [Unknown]
  - Tremor [Unknown]
  - Anxiety [Unknown]

NARRATIVE: CASE EVENT DATE: 20170107
